FAERS Safety Report 5610926-9 (Version None)
Quarter: 2008Q1

REPORT INFORMATION
  Report Type: 
  Country: None (occurrence: None)
  Receive Date: 20080201
  Receipt Date: 20080125
  Transmission Date: 20080703
  Serious: No
  Sender: FDA-Public Use
  Company Number: SE-PFIZER INC-2007039382

PATIENT
  Sex: Male

DRUGS (4)
  1. LYRICA [Suspect]
     Dosage: DAILY DOSE:150MG
     Route: 048
     Dates: start: 20060116, end: 20061124
  2. ALVEDON [Suspect]
     Dosage: DAILY DOSE:4GRAM
     Route: 048
     Dates: start: 20061019, end: 20061128
  3. TRAMADOL HCL [Concomitant]
     Dates: start: 20061019, end: 20061101
  4. DEXTROPROPOXIFEN [Concomitant]
     Route: 048

REACTIONS (1)
  - NO ADVERSE EVENT [None]
